FAERS Safety Report 15215140 (Version 6)
Quarter: 2021Q1

REPORT INFORMATION
  Report Type: Spontaneous
  Country: US (occurrence: US)
  Receive Date: 20180730
  Receipt Date: 20210125
  Transmission Date: 20210419
  Serious: Yes (Other)
  Sender: FDA-Public Use
  Company Number: US-PFIZER INC-2018303402

PATIENT
  Age: 44 Year
  Sex: Male

DRUGS (4)
  1. HYDROCODONE [Concomitant]
     Active Substance: HYDROCODONE
     Dosage: ^325/5 + DAILY AT BEDTIME^
  2. LYRICA [Suspect]
     Active Substance: PREGABALIN
     Indication: SOMNOLENCE
     Dosage: 150 MG, 2X/DAY
     Dates: start: 201807, end: 2018
  3. LYRICA [Suspect]
     Active Substance: PREGABALIN
     Dosage: 150 MG, 3X/DAY(TID?THREE TIME A DAY)
     Route: 048
  4. LYRICA [Suspect]
     Active Substance: PREGABALIN
     Indication: FIBROMYALGIA
     Dosage: 150 MG, 3X/DAY
     Route: 048
     Dates: start: 2015, end: 201807

REACTIONS (17)
  - Mental impairment [Unknown]
  - Anxiety [Unknown]
  - Intentional product use issue [Unknown]
  - Withdrawal syndrome [Unknown]
  - Dyspnoea [Unknown]
  - Endocrine disorder [Unknown]
  - Nervousness [Not Recovered/Not Resolved]
  - Poor quality sleep [Unknown]
  - Off label use [Unknown]
  - Disturbance in attention [Unknown]
  - Stress [Unknown]
  - Feeling hot [Unknown]
  - Back pain [Not Recovered/Not Resolved]
  - Product use issue [Unknown]
  - Feeling of despair [Unknown]
  - Temperature intolerance [Not Recovered/Not Resolved]
  - Panic attack [Not Recovered/Not Resolved]

NARRATIVE: CASE EVENT DATE: 2015
